FAERS Safety Report 8390106-7 (Version None)
Quarter: 2012Q2

REPORT INFORMATION
  Report Type: 
  Country: None (occurrence: None)
  Receive Date: 20120529
  Receipt Date: 20120523
  Transmission Date: 20120825
  Serious: Yes (Hospitalization, Other)
  Sender: FDA-Public Use
  Company Number: PHEH2012US010714

PATIENT
  Sex: Female
  Weight: 66.2 kg

DRUGS (1)
  1. EXJADE [Suspect]
     Indication: IRON OVERLOAD
     Dosage: 1500 MG, DAILY
     Route: 048
     Dates: start: 20120101

REACTIONS (2)
  - ROAD TRAFFIC ACCIDENT [None]
  - SICKLE CELL ANAEMIA WITH CRISIS [None]
